FAERS Safety Report 10541587 (Version 1)
Quarter: 2014Q4

REPORT INFORMATION
  Report Type: Spontaneous
  Country: US (occurrence: US)
  Receive Date: 20141024
  Receipt Date: 20141024
  Transmission Date: 20150529
  Serious: Yes (Hospitalization, Other)
  Sender: FDA-Public Use
  Company Number: US-BAYER-2014-152761

PATIENT
  Age: 53 Year
  Sex: Female

DRUGS (2)
  1. CIPRO [Suspect]
     Active Substance: CIPROFLOXACIN HYDROCHLORIDE
     Indication: URINARY TRACT INFECTION
     Dosage: UNK
     Route: 048
     Dates: start: 20140917, end: 20140919
  2. CIPRO [Suspect]
     Active Substance: CIPROFLOXACIN HYDROCHLORIDE
     Indication: URINARY TRACT INFECTION
     Dosage: UNK
     Route: 048
     Dates: start: 20140922

REACTIONS (8)
  - Dysuria [None]
  - Malaise [None]
  - Hypoaesthesia [Not Recovered/Not Resolved]
  - Vomiting [None]
  - Dehydration [None]
  - Dysstasia [None]
  - Toxicity to various agents [None]
  - Vulvovaginal burning sensation [None]

NARRATIVE: CASE EVENT DATE: 2014
